FAERS Safety Report 5659776-8 (Version None)
Quarter: 2008Q1

REPORT INFORMATION
  Report Type: 
  Country: None (occurrence: None)
  Receive Date: 20080311
  Receipt Date: 20071017
  Transmission Date: 20080703
  Serious: Yes (Other)
  Sender: FDA-Public Use
  Company Number: US-BAYER-200712300BCC

PATIENT
  Age: 44 Year
  Sex: Female
  Weight: 91 kg

DRUGS (3)
  1. ALEVE [Suspect]
     Indication: DYSMENORRHOEA
     Dosage: TOTAL DAILY DOSE: 220 MG  UNIT DOSE: 220 MG
     Route: 048
     Dates: start: 20040101
  2. LOTREL [Concomitant]
     Route: 048
  3. PRILOSEC [Concomitant]

REACTIONS (8)
  - APHTHOUS STOMATITIS [None]
  - DRUG HYPERSENSITIVITY [None]
  - ERYTHEMA [None]
  - PARAESTHESIA ORAL [None]
  - RASH MACULAR [None]
  - SKIN EXFOLIATION [None]
  - SKIN LESION [None]
  - SWELLING FACE [None]
